FAERS Safety Report 24529782 (Version 2)
Quarter: 2024Q4

REPORT INFORMATION
  Report Type: Report from Study
  Country: US (occurrence: US)
  Receive Date: 20241021
  Receipt Date: 20241118
  Transmission Date: 20250115
  Serious: Yes (Death)
  Sender: DAIICHI
  Company Number: US-DSJP-DSU-2023-152608

PATIENT
  Age: 67 Year
  Sex: Male
  Weight: 78.458 kg

DRUGS (1)
  1. ENHERTU [Suspect]
     Active Substance: FAM-TRASTUZUMAB DERUXTECAN-NXKI
     Indication: Product used for unknown indication
     Dosage: 430 MG, OVER 90 MINUTES EVERY 3 WEEKS
     Route: 042
     Dates: start: 20231205

REACTIONS (3)
  - Death [Fatal]
  - Weight decreased [Unknown]
  - Product dose omission issue [Unknown]

NARRATIVE: CASE EVENT DATE: 20231201
